FAERS Safety Report 14779053 (Version 2)
Quarter: 2018Q3

REPORT INFORMATION
  Report Type: Spontaneous
  Country: IT (occurrence: IT)
  Receive Date: 20180419
  Receipt Date: 20180823
  Transmission Date: 20181010
  Serious: Yes (Other)
  Sender: FDA-Public Use
  Company Number: IT-JNJFOC-20180413381

PATIENT

DRUGS (1)
  1. HUMAN CLOTTABLE PROTEIN/HUMAN THROMBIN [Suspect]
     Active Substance: FIBRINOGEN HUMAN\THROMBIN HUMAN
     Indication: PTERYGIUM
     Route: 061

REACTIONS (4)
  - Diplopia [Recovered/Resolved]
  - Conjunctivitis [Recovered/Resolved]
  - Off label use [Unknown]
  - Product use in unapproved indication [Unknown]
